FAERS Safety Report 9648540 (Version 1)
Quarter: 2013Q4

REPORT INFORMATION
  Report Type: Spontaneous
  Country: AU (occurrence: AU)
  Receive Date: 20131028
  Receipt Date: 20131028
  Transmission Date: 20140711
  Serious: Yes (Hospitalization, Disabling, Other)
  Sender: FDA-Public Use
  Company Number: AU-SA-2013SA106883

PATIENT
  Age: 78 Year
  Sex: Female

DRUGS (4)
  1. KARVEZIDE [Suspect]
     Indication: RHEUMATOID ARTHRITIS
     Dosage: STRENGTH :300/12.5
     Route: 065
  2. ACTEMRA [Suspect]
     Indication: RHEUMATOID ARTHRITIS
     Dosage: FORM: INFUSION?FREQUENCY: EVERY 4 WEEKS
     Route: 042
     Dates: start: 20091221
  3. METHOTREXATE [Suspect]
     Indication: PRODUCT USED FOR UNKNOWN INDICATION
     Route: 065
  4. PARIET [Suspect]
     Indication: PRODUCT USED FOR UNKNOWN INDICATION
     Route: 065

REACTIONS (3)
  - Cerebrovascular accident [Recovering/Resolving]
  - Feeling abnormal [Unknown]
  - Cerebrovascular accident [Recovering/Resolving]
